FAERS Safety Report 16974754 (Version 1)
Quarter: 2019Q4

REPORT INFORMATION
  Report Type: Spontaneous
  Country: NL (occurrence: NL)
  Receive Date: 20191030
  Receipt Date: 20191030
  Transmission Date: 20200122
  Serious: Yes (Other)
  Sender: FDA-Public Use
  Company Number: NL-TEVA-2019-NL-1128758

PATIENT
  Sex: Female

DRUGS (1)
  1. PAROXETINE. [Suspect]
     Active Substance: PAROXETINE
     Dosage: 30 MILLIGRAM DAILY;
     Route: 064

REACTIONS (3)
  - Long QT syndrome [Recovered/Resolved]
  - Atrioventricular block [Recovered/Resolved]
  - Foetal exposure during pregnancy [Unknown]
